FAERS Safety Report 17736728 (Version 1)
Quarter: 2020Q2

REPORT INFORMATION
  Report Type: Spontaneous
  Country: FR (occurrence: FR)
  Receive Date: 20200501
  Receipt Date: 20200501
  Transmission Date: 20200714
  Serious: Yes (Hospitalization, Other)
  Sender: FDA-Public Use
  Company Number: FR-AUROBINDO-AUR-APL-2020-021546

PATIENT
  Age: 58 Year
  Sex: Female

DRUGS (9)
  1. PRIMPERAN [Suspect]
     Active Substance: METOCLOPRAMIDE HYDROCHLORIDE
     Indication: PROPHYLAXIS OF NAUSEA AND VOMITING
     Dosage: NON RENSEIGN?E
     Route: 042
     Dates: start: 20200323, end: 20200414
  2. ACUPAN [Suspect]
     Active Substance: NEFOPAM HYDROCHLORIDE
     Indication: PAIN
     Dosage: NON RENSEIGN?E
     Route: 042
     Dates: start: 20200316, end: 20200406
  3. AUGMENTIN [Suspect]
     Active Substance: AMOXICILLIN\CLAVULANATE POTASSIUM
     Indication: SUPERINFECTION
     Dosage: DU 15 AU 19/03 ET REPRIS LE 20/03
     Route: 048
     Dates: start: 20200315, end: 20200414
  4. FLUCONAZOLE. [Suspect]
     Active Substance: FLUCONAZOLE
     Indication: GASTROINTESTINAL CANDIDIASIS
     Dosage: NON RENSEIGN?E
     Route: 042
     Dates: start: 20200227, end: 20200403
  5. OXYCODONE [Suspect]
     Active Substance: OXYCODONE
     Indication: PAIN
     Dosage: NON RENSEIGN?E
     Route: 042
     Dates: start: 20200406
  6. PANTOPRAZOLE [Suspect]
     Active Substance: PANTOPRAZOLE
     Indication: OESOPHAGITIS
     Dosage: 40 MILLIGRAM, ONCE A DAY (40MG/JOUR)
     Route: 042
     Dates: start: 20200317, end: 20200414
  7. AMLOR [Suspect]
     Active Substance: AMLODIPINE BESYLATE
     Indication: HYPERTENSION
     Dosage: NON RENSEIGN?E
     Route: 048
     Dates: start: 20200320, end: 20200414
  8. IMOVANE [Suspect]
     Active Substance: ZOPICLONE
     Indication: INSOMNIA
     Dosage: NON RENSEIGN?E
     Route: 048
     Dates: start: 20200329
  9. KEYTRUDA [Suspect]
     Active Substance: PEMBROLIZUMAB
     Indication: LUNG NEOPLASM MALIGNANT
     Dosage: 1?RE CURE LE 12 MARS ET 2ND CURE LE 2 AVRIL.
     Route: 042
     Dates: start: 20200312, end: 20200402

REACTIONS (1)
  - Stevens-Johnson syndrome [Not Recovered/Not Resolved]

NARRATIVE: CASE EVENT DATE: 20200411
